FAERS Safety Report 20030121 (Version 1)
Quarter: 2021Q4

REPORT INFORMATION
  Report Type: Spontaneous
  Country: TH (occurrence: TH)
  Receive Date: 20211103
  Receipt Date: 20211103
  Transmission Date: 20220303
  Serious: Yes (Other)
  Sender: FDA-Public Use
  Company Number: TH-NOVARTISPH-NVSC2021TH243309

PATIENT
  Age: 70 Year
  Sex: Male

DRUGS (1)
  1. BROLUCIZUMAB [Suspect]
     Active Substance: BROLUCIZUMAB
     Indication: Polypoidal choroidal vasculopathy
     Dosage: UNK (RIGHT EYE)
     Route: 065
     Dates: start: 20210917

REACTIONS (5)
  - Iridocyclitis [Recovering/Resolving]
  - Vitritis [Recovering/Resolving]
  - Anterior chamber cell [Recovering/Resolving]
  - Vitreous floaters [Recovering/Resolving]
  - Off label use [Unknown]

NARRATIVE: CASE EVENT DATE: 20211001
